FAERS Safety Report 21179909 (Version 1)
Quarter: 2022Q3

REPORT INFORMATION
  Report Type: Spontaneous
  Country: US (occurrence: None)
  Receive Date: 20220805
  Receipt Date: 20220805
  Transmission Date: 20221027
  Serious: Yes (Life-Threatening, Hospitalization)
  Sender: FDA-Public Use
  Company Number: None

PATIENT
  Age: 60 Year
  Sex: Male

DRUGS (1)
  1. CIPROFLOXACIN HCL [Suspect]
     Active Substance: CIPROFLOXACIN HYDROCHLORIDE
     Dosage: 1 TAB BID PO?
     Route: 048
     Dates: start: 20220417, end: 20220518

REACTIONS (4)
  - Ventricular fibrillation [None]
  - Ventricular tachycardia [None]
  - Cardiac arrest [None]
  - Palpitations [None]

NARRATIVE: CASE EVENT DATE: 20220502
